FAERS Safety Report 13358756 (Version 10)
Quarter: 2020Q2

REPORT INFORMATION
  Report Type: Spontaneous
  Country: CA (occurrence: CA)
  Receive Date: 20170322
  Receipt Date: 20200529
  Transmission Date: 20200713
  Serious: Yes (Other)
  Sender: FDA-Public Use
  Company Number: CA-ROCHE-1908678

PATIENT
  Age: 63 Year
  Sex: Female

DRUGS (15)
  1. XOLAIR [Suspect]
     Active Substance: OMALIZUMAB
     Route: 058
     Dates: start: 20190517
  2. XOLAIR [Suspect]
     Active Substance: OMALIZUMAB
     Route: 058
     Dates: start: 20190905
  3. XOLAIR [Suspect]
     Active Substance: OMALIZUMAB
     Route: 058
     Dates: start: 20170615
  4. XOLAIR [Suspect]
     Active Substance: OMALIZUMAB
     Route: 058
     Dates: start: 20160817
  5. XOLAIR [Suspect]
     Active Substance: OMALIZUMAB
     Route: 058
     Dates: start: 20190315
  6. XOLAIR [Suspect]
     Active Substance: OMALIZUMAB
     Route: 058
     Dates: start: 201703
  7. XOLAIR [Suspect]
     Active Substance: OMALIZUMAB
     Route: 058
     Dates: start: 20170314
  8. SINGULAIR [Concomitant]
     Active Substance: MONTELUKAST SODIUM
     Indication: PRODUCT USED FOR UNKNOWN INDICATION
     Route: 065
     Dates: start: 20160101
  9. XOLAIR [Suspect]
     Active Substance: OMALIZUMAB
     Route: 058
     Dates: start: 20170214
  10. FLOVENT [Concomitant]
     Active Substance: FLUTICASONE PROPIONATE
     Indication: PRODUCT USED FOR UNKNOWN INDICATION
     Route: 065
     Dates: start: 20160401
  11. SYMBICORT [Concomitant]
     Active Substance: BUDESONIDE\FORMOTEROL FUMARATE DIHYDRATE
     Indication: PRODUCT USED FOR UNKNOWN INDICATION
     Dosage: 2 DF (200/6)
     Route: 065
     Dates: start: 20110401
  12. VENTOLIN [Concomitant]
     Active Substance: ALBUTEROL SULFATE
     Indication: PRODUCT USED FOR UNKNOWN INDICATION
     Dosage: PRN
     Route: 065
     Dates: start: 19930401
  13. XOLAIR [Suspect]
     Active Substance: OMALIZUMAB
     Indication: ASTHMA
     Route: 058
     Dates: start: 20160524
  14. XOLAIR [Suspect]
     Active Substance: OMALIZUMAB
     Route: 058
     Dates: start: 20170518
  15. XOLAIR [Suspect]
     Active Substance: OMALIZUMAB
     Route: 058
     Dates: start: 20170719

REACTIONS (26)
  - Humidity intolerance [Unknown]
  - Sleep disorder [Unknown]
  - Frustration tolerance decreased [Unknown]
  - Arthralgia [Not Recovered/Not Resolved]
  - Wheezing [Unknown]
  - Malaise [Unknown]
  - Sinusitis [Recovering/Resolving]
  - Weight decreased [Unknown]
  - Bronchitis [Unknown]
  - Lung disorder [Unknown]
  - Seasonal allergy [Unknown]
  - Pain in extremity [Not Recovered/Not Resolved]
  - Decreased activity [Unknown]
  - Blood pressure systolic increased [Unknown]
  - Herpes zoster [Unknown]
  - Dust allergy [Unknown]
  - Throat irritation [Unknown]
  - Infection susceptibility increased [Unknown]
  - Influenza like illness [Unknown]
  - Respiratory tract infection [Unknown]
  - Asthma [Unknown]
  - Infection [Unknown]
  - Cough [Unknown]
  - Protein total increased [Unknown]
  - Nasal congestion [Unknown]
  - Perfume sensitivity [Unknown]

NARRATIVE: CASE EVENT DATE: 2017
